FAERS Safety Report 12316237 (Version 3)
Quarter: 2018Q4

REPORT INFORMATION
  Report Type: Spontaneous
  Country: US (occurrence: US)
  Receive Date: 20160428
  Receipt Date: 20181112
  Transmission Date: 20190204
  Serious: Yes (Other)
  Sender: FDA-Public Use
  Company Number: US-ENDO PHARMACEUTICALS INC.-2016-002803

PATIENT
  Sex: Male
  Weight: 129.25 kg

DRUGS (3)
  1. OPANA ER [Suspect]
     Active Substance: OXYMORPHONE HYDROCHLORIDE
     Dosage: 40 MG, BID
     Route: 048
     Dates: start: 2008, end: 201002
  2. ROXYCODONE [Concomitant]
     Active Substance: OXYCODONE HYDROCHLORIDE
     Indication: PAIN
     Dosage: UP TO 8 PER DAY
     Route: 048
     Dates: start: 2008
  3. OPANA ER [Suspect]
     Active Substance: OXYMORPHONE HYDROCHLORIDE
     Indication: PAIN
     Dosage: 40 MG, TID
     Route: 048
     Dates: start: 201002

REACTIONS (5)
  - Tooth loss [Unknown]
  - Inappropriate schedule of product administration [Not Recovered/Not Resolved]
  - Memory impairment [Unknown]
  - Teeth brittle [Unknown]
  - Dry mouth [Unknown]

NARRATIVE: CASE EVENT DATE: 2008
